FAERS Safety Report 9845913 (Version 1)
Quarter: 2014Q1

REPORT INFORMATION
  Report Type: Spontaneous
  Country: US (occurrence: None)
  Receive Date: 20140122
  Receipt Date: 20140122
  Transmission Date: 20141002
  Serious: Yes (Death)
  Sender: FDA-Public Use
  Company Number: B0960178A

PATIENT
  Age: 67 Year
  Sex: Female

DRUGS (4)
  1. CARVEDILOL [Suspect]
     Route: 048
  2. DILTIAZEM HYDROCHLORIDE (FORMULATION UNKNOWN) (GENERIC) (DILTIAZEM HYDROCHLORIDE) [Suspect]
     Route: 048
  3. SERTRALINE (FORMULATION UNKNOWN) (GENERIC) (SERTRALINE) [Suspect]
     Route: 048
  4. CLOPIDOGREL [Suspect]
     Route: 048

REACTIONS (2)
  - Exposure via ingestion [None]
  - Drug level above therapeutic [None]
